FAERS Safety Report 7248202-3 (Version None)
Quarter: 2011Q1

REPORT INFORMATION
  Report Type: 
  Country: None (occurrence: None)
  Receive Date: 20110127
  Receipt Date: 20110113
  Transmission Date: 20110831
  Serious: Yes (Hospitalization, Other)
  Sender: FDA-Public Use
  Company Number: BR-GENENTECH-310623

PATIENT
  Sex: Female
  Weight: 75 kg

DRUGS (8)
  1. CAPTOPRIL [Concomitant]
     Indication: PRODUCT USED FOR UNKNOWN INDICATION
     Dosage: 25 MG, UNK
  2. METHYLPREDNISOLONE [Concomitant]
     Indication: PREMEDICATION
  3. RITUXIMAB [Suspect]
     Indication: RHEUMATOID ARTHRITIS
     Dosage: 1000 MG, UNK
     Route: 065
     Dates: start: 20100424, end: 20100508
  4. PREDNISONE [Concomitant]
     Indication: PRODUCT USED FOR UNKNOWN INDICATION
     Dosage: UNK
  5. CYCLOPHOSPHAMIDE [Concomitant]
     Indication: PREMEDICATION
  6. LONGACTIL [Concomitant]
     Indication: PRODUCT USED FOR UNKNOWN INDICATION
  7. AZATHIOPRINE [Concomitant]
     Indication: PRODUCT USED FOR UNKNOWN INDICATION
     Dosage: 50 MG, UNK
  8. RIVOTRIL [Concomitant]
     Indication: PRODUCT USED FOR UNKNOWN INDICATION
     Dosage: UNK

REACTIONS (8)
  - URINARY TRACT INFECTION [None]
  - NEUROPSYCHIATRIC LUPUS [None]
  - NEOPLASM [None]
  - COMA [None]
  - DEVICE RELATED INFECTION [None]
  - WEIGHT INCREASED [None]
  - WEIGHT DECREASED [None]
  - ALOPECIA [None]
